FAERS Safety Report 7694485-5 (Version None)
Quarter: 2011Q3

REPORT INFORMATION
  Report Type: 
  Country: None (occurrence: None)
  Receive Date: 20110819
  Receipt Date: 20110808
  Transmission Date: 20111222
  Serious: Yes (Hospitalization)
  Sender: FDA-Public Use
  Company Number: US-UCBSA-8048381

PATIENT
  Sex: Female
  Weight: 3.125 kg

DRUGS (10)
  1. KEPPRA [Suspect]
     Indication: EPILEPSY
     Route: 064
  2. LACOSAMIDE [Suspect]
     Indication: EPILEPSY
     Route: 064
     Dates: start: 20090615, end: 20100622
  3. ALBUTEROL INHALER [Concomitant]
     Indication: ASTHMA
     Route: 064
     Dates: end: 20090622
  4. KEPPRA XR [Suspect]
     Indication: EPILEPSY
     Route: 064
     Dates: end: 20090615
  5. GLYBURIDE [Concomitant]
     Indication: GESTATIONAL DIABETES
     Route: 064
     Dates: start: 20090317, end: 20090323
  6. LANTUS [Concomitant]
     Indication: GESTATIONAL DIABETES
     Dosage: 'SLIDING SCALE'
     Route: 064
     Dates: start: 20090324, end: 20090622
  7. CLARITIN [Concomitant]
     Indication: HYPERSENSITIVITY
     Route: 064
     Dates: end: 20090622
  8. ADVAIR DISKUS 100/50 [Concomitant]
     Indication: HYPERSENSITIVITY
     Dosage: 250/50 MCG TWICE A DAY
     Route: 064
     Dates: start: 20090301, end: 20090622
  9. REPLIVA [Concomitant]
     Indication: ANAEMIA
     Route: 064
     Dates: start: 20090301, end: 20090622
  10. PRENATAL VITAMINS [Concomitant]
     Indication: PREGNANCY
     Route: 064
     Dates: end: 20090622

REACTIONS (2)
  - MATERNAL EXPOSURE DURING PREGNANCY [None]
  - PLEURAL EFFUSION [None]
